FAERS Safety Report 6510048-9 (Version None)
Quarter: 2009Q4

REPORT INFORMATION
  Report Type: 
  Country: None (occurrence: None)
  Receive Date: 20091222
  Receipt Date: 20090715
  Transmission Date: 20100525
  Serious: No
  Sender: FDA-Public Use
  Company Number: US-BAUSCH-2009BL003502

PATIENT
  Age: 26 Year
  Sex: Female

DRUGS (2)
  1. TOBRAMYCIN [Suspect]
     Indication: DRUG USE FOR UNKNOWN INDICATION
     Route: 047
     Dates: start: 20090709, end: 20090711
  2. DILANTIN [Concomitant]
     Indication: EPILEPSY
     Route: 048
     Dates: start: 20090301

REACTIONS (4)
  - EYE IRRITATION [None]
  - EYE PRURITUS [None]
  - EYE SWELLING [None]
  - OCULAR HYPERAEMIA [None]
